FAERS Safety Report 7778739-X (Version None)
Quarter: 2011Q3

REPORT INFORMATION
  Report Type: 
  Country: None (occurrence: None)
  Receive Date: 20110926
  Receipt Date: 20110711
  Transmission Date: 20111222
  Serious: Yes (Hospitalization, Other)
  Sender: FDA-Public Use
  Company Number: US-BAYER-201016913NA

PATIENT
  Age: 40 Year
  Sex: Female
  Weight: 77.098 kg

DRUGS (12)
  1. YAZ [Suspect]
     Indication: MENSTRUAL CYCLE MANAGEMENT
     Dosage: UNK UNK, QD
     Route: 048
     Dates: start: 20071201, end: 20080223
  2. LEUPROLIDE ACETATE [Concomitant]
  3. YAZ [Suspect]
     Indication: PROPHYLAXIS
  4. YAZ [Suspect]
     Indication: PREGNANCY
  5. LORTAB [Concomitant]
  6. COMPAZINE [Concomitant]
  7. AMBIEN [Concomitant]
  8. NOVAREL [Concomitant]
  9. ANTIPROPULSIVES [Concomitant]
  10. ADVIL [Concomitant]
     Indication: HEADACHE
  11. GONADOTROPINS [Concomitant]
  12. FOLLISTIM [Concomitant]

REACTIONS (4)
  - INTRACRANIAL VENOUS SINUS THROMBOSIS [None]
  - VENOUS THROMBOSIS [None]
  - CEREBROVASCULAR ACCIDENT [None]
  - DEPRESSION [None]
